FAERS Safety Report 18554732 (Version 1)
Quarter: 2020Q4

REPORT INFORMATION
  Report Type: Spontaneous
  Country: FI (occurrence: FI)
  Receive Date: 20201127
  Receipt Date: 20201127
  Transmission Date: 20210114
  Serious: Yes (Disabling)
  Sender: FDA-Public Use
  Company Number: FI-TAKEDA-2020TUS053573

PATIENT
  Age: 26 Year
  Sex: Male

DRUGS (2)
  1. BRINTELLIX [Suspect]
     Active Substance: VORTIOXETINE HYDROBROMIDE
     Indication: MOOD ALTERED
     Dosage: 10 MILLIGRAM, QD
     Route: 048
     Dates: start: 20200513, end: 20200615
  2. SIRDALUD [Concomitant]
     Active Substance: TIZANIDINE
     Indication: BRUXISM
     Dosage: UNK
     Route: 048
     Dates: start: 201807

REACTIONS (7)
  - Musculoskeletal stiffness [Not Recovered/Not Resolved]
  - Facial pain [Not Recovered/Not Resolved]
  - Bruxism [Not Recovered/Not Resolved]
  - Product use in unapproved indication [Unknown]
  - Pain [Not Recovered/Not Resolved]
  - Neck pain [Not Recovered/Not Resolved]
  - Pain in jaw [Not Recovered/Not Resolved]

NARRATIVE: CASE EVENT DATE: 20200525
